FAERS Safety Report 14276112 (Version 2)
Quarter: 2018Q2

REPORT INFORMATION
  Report Type: Spontaneous
  Country: IT (occurrence: IT)
  Receive Date: 20171212
  Receipt Date: 20180419
  Transmission Date: 20180711
  Serious: Yes (Other)
  Sender: FDA-Public Use
  Company Number: IT-SUN PHARMACEUTICAL INDUSTRIES LTD-2017RR-156438

PATIENT
  Age: 36 Year
  Sex: Female

DRUGS (8)
  1. DICLOFENAC [Suspect]
     Active Substance: DICLOFENAC
     Dosage: 75 MG, QD
     Route: 065
  2. PARACETAMOL [Suspect]
     Active Substance: ACETAMINOPHEN
     Indication: NEURITIS
     Route: 065
  3. NIMESULIDE [Suspect]
     Active Substance: NIMESULIDE
     Dosage: 200 MG, QD
     Route: 065
  4. PARACETAMOL [Suspect]
     Active Substance: ACETAMINOPHEN
     Dosage: 2 G, QD, 1-2 G, QD
     Route: 065
  5. DICLOFENAC [Suspect]
     Active Substance: DICLOFENAC
     Indication: NEURITIS
     Route: 065
  6. NIMESULIDE [Suspect]
     Active Substance: NIMESULIDE
     Dosage: 100 MG, QD
     Route: 065
  7. NIMESULIDE [Suspect]
     Active Substance: NIMESULIDE
     Indication: NEURITIS
     Route: 065
  8. PARACETAMOL [Suspect]
     Active Substance: ACETAMINOPHEN
     Dosage: 9 G, QD, 8-9 G, QD
     Route: 065

REACTIONS (3)
  - Overdose [Unknown]
  - Maternal exposure during pregnancy [Unknown]
  - Contraindication to medical treatment [Unknown]
